FAERS Safety Report 5721269-7 (Version None)
Quarter: 2008Q2

REPORT INFORMATION
  Report Type: 
  Country: None (occurrence: None)
  Receive Date: 20080429
  Receipt Date: 20080423
  Transmission Date: 20081010
  Serious: Yes (Hospitalization)
  Sender: FDA-Public Use
  Company Number: FR-BRISTOL-MYERS SQUIBB COMPANY-14167894

PATIENT
  Age: 68 Year
  Sex: Female

DRUGS (3)
  1. GLUCOPHAGE [Suspect]
     Route: 048
  2. GLIMEPIRIDE [Suspect]
     Route: 048
     Dates: end: 20080209
  3. HUMULIN N [Suspect]
     Dosage: 14 IU REDUCED TO 10 IU, DAILY, SUBCONJUNCTIVAL FROM 09FEB2008-ONGOING.
     Route: 058

REACTIONS (2)
  - GRAND MAL CONVULSION [None]
  - HYPOGLYCAEMIC SEIZURE [None]
